FAERS Safety Report 8853863 (Version 1)
Quarter: 2012Q4

REPORT INFORMATION
  Report Type: 
  Country: US (occurrence: US)
  Receive Date: 20121022
  Receipt Date: 20121022
  Transmission Date: 20130627
  Serious: Yes (Other)
  Sender: FDA-Public Use
  Company Number: PHEH2012US020493

PATIENT
  Sex: Female

DRUGS (3)
  1. ZOMETA [Suspect]
     Indication: METASTASES TO BONE
     Dosage: 4 mg, UNK
     Dates: start: 20101019
  2. FEMARA [Suspect]
     Dates: start: 20071120
  3. IXEMPRA [Concomitant]

REACTIONS (3)
  - Herpes zoster [Unknown]
  - Neuralgia [Unknown]
  - Pain [Unknown]
